FAERS Safety Report 4719575-8 (Version None)
Quarter: 2005Q3

REPORT INFORMATION
  Report Type: 
  Country: None (occurrence: None)
  Receive Date: 20050721
  Receipt Date: 20031125
  Transmission Date: 20060218
  Serious: Yes (Hospitalization)
  Sender: FDA-Public Use
  Company Number: US-GLAXOSMITHKLINE-A0441687A

PATIENT
  Age: 60 Year
  Sex: Female

DRUGS (15)
  1. AVANDIA [Suspect]
     Route: 048
  2. MICRO-K [Concomitant]
     Dosage: 10MEQ TWICE PER DAY
     Route: 048
  3. LASIX [Concomitant]
     Dosage: 40MG TWICE PER DAY
     Route: 048
  4. LOTREL [Concomitant]
     Route: 048
  5. DEPAKOTE [Concomitant]
     Dosage: 750MG AT NIGHT
  6. CELEXA [Concomitant]
     Dosage: 40MG PER DAY
     Route: 048
  7. INSULIN [Concomitant]
  8. LIPITOR [Concomitant]
     Dosage: 20MG PER DAY
     Route: 048
  9. LEVOXYL [Concomitant]
     Dosage: 125MCG PER DAY
     Route: 048
  10. XALATAN [Concomitant]
  11. DICLOFENAC SODIUM [Concomitant]
     Dosage: 75MG TWICE PER DAY
     Route: 048
  12. FLONASE [Concomitant]
  13. SEROQUEL [Concomitant]
     Dosage: 400MG AT NIGHT
     Route: 048
  14. ASPIRIN [Concomitant]
     Dosage: 81MG PER DAY
     Route: 048
  15. ALLOPURINOL [Concomitant]

REACTIONS (1)
  - CARDIAC FAILURE CONGESTIVE [None]
